FAERS Safety Report 11065785 (Version 1)
Quarter: 2015Q2

REPORT INFORMATION
  Report Type: Spontaneous
  Country: US (occurrence: None)
  Receive Date: 20150423
  Receipt Date: 20150423
  Transmission Date: 20150821
  Serious: Yes (Disabling)
  Sender: FDA-Public Use
  Company Number: ZYD-15-AE-148

PATIENT
  Age: 58 Year
  Sex: Male

DRUGS (3)
  1. PAXIL [Suspect]
     Active Substance: PAROXETINE HYDROCHLORIDE
     Indication: OBSESSIVE-COMPULSIVE DISORDER
     Route: 048
     Dates: start: 1990, end: 201410
  2. CLORAZEPATE [Concomitant]
     Active Substance: CLORAZEPATE DIPOTASSIUM
  3. LORAZEPAM. [Concomitant]
     Active Substance: LORAZEPAM

REACTIONS (9)
  - Product substitution issue [None]
  - Impulsive behaviour [None]
  - Libido decreased [None]
  - Aggression [None]
  - Anger [None]
  - Mood altered [None]
  - Imprisonment [None]
  - Drug withdrawal syndrome [None]
  - Drug ineffective [None]
